FAERS Safety Report 19179187 (Version 1)
Quarter: 2021Q2

REPORT INFORMATION
  Report Type: Spontaneous
  Country: US (occurrence: US)
  Receive Date: 20210426
  Receipt Date: 20210426
  Transmission Date: 20210717
  Serious: No
  Sender: FDA-Public Use
  Company Number: US-AMGEN-USASP2021059543

PATIENT
  Sex: Female

DRUGS (7)
  1. IPRATROPIUM [Concomitant]
     Active Substance: IPRATROPIUM
     Dosage: UNK, 0.02%
  2. SPIRIVA [Concomitant]
     Active Substance: TIOTROPIUM BROMIDE MONOHYDRATE
     Dosage: 1.25 MICROGRAM
  3. VALIUM [Concomitant]
     Active Substance: DIAZEPAM
     Dosage: 5 MILLIGRAM
  4. SYMBICORT [Concomitant]
     Active Substance: BUDESONIDE\FORMOTEROL FUMARATE DIHYDRATE
     Dosage: UNK, 160?4.5 MICROGRAM
  5. ALBUTEROL [SALBUTAMOL] [Concomitant]
     Active Substance: ALBUTEROL
     Dosage: SU AER 108/ 90
  6. EMGALITY [Concomitant]
     Active Substance: GALCANEZUMAB-GNLM
     Dosage: 120 MILLIGRAM PER MILLILITRE
  7. REPATHA [Suspect]
     Active Substance: EVOLOCUMAB
     Indication: ASTHMA
     Dosage: 140 MILLIGRAM PER MILLILITRE
     Route: 065

REACTIONS (6)
  - Urticaria [Not Recovered/Not Resolved]
  - Weight increased [Not Recovered/Not Resolved]
  - Muscle spasms [Not Recovered/Not Resolved]
  - Off label use [Unknown]
  - Swelling [Not Recovered/Not Resolved]
  - Blood pressure abnormal [Not Recovered/Not Resolved]
